FAERS Safety Report 17830728 (Version 1)
Quarter: 2020Q2

REPORT INFORMATION
  Report Type: Spontaneous
  Country: IT (occurrence: IT)
  Receive Date: 20200527
  Receipt Date: 20200527
  Transmission Date: 20200714
  Serious: Yes (Other)
  Sender: FDA-Public Use
  Company Number: IT-AMNEAL PHARMACEUTICALS-2020-AMRX-01519

PATIENT
  Age: 53 Year
  Sex: Male

DRUGS (2)
  1. PREDNISONE. [Suspect]
     Active Substance: PREDNISONE
     Indication: DERMATITIS BULLOUS
     Dosage: 4 MILLIGRAM, DAILY
     Route: 065
  2. AZATHIOPRINE. [Suspect]
     Active Substance: AZATHIOPRINE
     Indication: DERMATITIS BULLOUS
     Dosage: 100 MILLIGRAM, DAILY
     Route: 065

REACTIONS (1)
  - COVID-19 [Unknown]

NARRATIVE: CASE EVENT DATE: 2020
